FAERS Safety Report 12261642 (Version 1)
Quarter: 2016Q2

REPORT INFORMATION
  Report Type: Spontaneous
  Country: CN (occurrence: CN)
  Receive Date: 20160412
  Receipt Date: 20160412
  Transmission Date: 20160815
  Serious: Yes (Hospitalization)
  Sender: FDA-Public Use
  Company Number: CN-APOTEX-2016AP007756

PATIENT
  Age: 51 Year
  Sex: Female
  Weight: 53 kg

DRUGS (1)
  1. PAXIL [Suspect]
     Active Substance: PAROXETINE HYDROCHLORIDE
     Indication: ANXIETY
     Dosage: 1 UNK, QD
     Route: 048
     Dates: start: 20160204, end: 20160404

REACTIONS (3)
  - Transaminases increased [Not Recovered/Not Resolved]
  - Ocular icterus [Recovering/Resolving]
  - Yellow skin [Recovering/Resolving]

NARRATIVE: CASE EVENT DATE: 20160404
